FAERS Safety Report 11857778 (Version 1)
Quarter: 2015Q4

REPORT INFORMATION
  Report Type: Spontaneous
  Country: US (occurrence: None)
  Receive Date: 20151221
  Receipt Date: 20151221
  Transmission Date: 20160305
  Serious: No
  Sender: FDA-Public Use
  Company Number: None

PATIENT
  Age: 27 Month
  Sex: Male
  Weight: 11.34 kg

DRUGS (1)
  1. GENERIC OMNICEF [Suspect]
     Active Substance: CEFDINIR
     Indication: SINUSITIS
     Dosage: ORAL SUSPENSION
     Route: 048

REACTIONS (1)
  - Insomnia [None]

NARRATIVE: CASE EVENT DATE: 20151219
